FAERS Safety Report 6697411-0 (Version None)
Quarter: 2010Q2

REPORT INFORMATION
  Report Type: 
  Country: None (occurrence: None)
  Receive Date: 20100426
  Receipt Date: 20100412
  Transmission Date: 20101027
  Serious: Yes (Other)
  Sender: FDA-Public Use
  Company Number: GB-MYLANLABS-2010S1006218

PATIENT
  Age: 21 Year
  Sex: Female
  Weight: 34.93 kg

DRUGS (1)
  1. CITALOPRAM [Suspect]
     Indication: DEPRESSION
     Route: 048
     Dates: start: 20100322, end: 20100322

REACTIONS (3)
  - CHILLS [None]
  - FEELING ABNORMAL [None]
  - VOMITING [None]
